FAERS Safety Report 17971081 (Version 3)
Quarter: 2020Q3

REPORT INFORMATION
  Report Type: Spontaneous
  Country: HR (occurrence: HR)
  Receive Date: 20200701
  Receipt Date: 20200715
  Transmission Date: 20201103
  Serious: Yes (Hospitalization, Other)
  Sender: FDA-Public Use
  Company Number: HR-ABBVIE-20K-216-3458150-00

PATIENT
  Sex: Female

DRUGS (5)
  1. VENETOCLAX. [Suspect]
     Active Substance: VENETOCLAX
     Route: 048
     Dates: start: 201911, end: 202001
  2. IMBRUVICA [Suspect]
     Active Substance: IBRUTINIB
     Indication: CHRONIC LYMPHOCYTIC LEUKAEMIA
     Route: 048
     Dates: start: 201906, end: 201909
  3. VENETOCLAX. [Suspect]
     Active Substance: VENETOCLAX
     Route: 048
     Dates: start: 202001
  4. RITUXIMAB. [Suspect]
     Active Substance: RITUXIMAB
     Indication: CHRONIC LYMPHOCYTIC LEUKAEMIA
     Route: 065
     Dates: start: 201909
  5. VENETOCLAX. [Suspect]
     Active Substance: VENETOCLAX
     Indication: CHRONIC LYMPHOCYTIC LEUKAEMIA
     Dosage: GRADUAL INCREASE OF DOSE ACCORDING TO DOSING PROTOCOL UP TO 400 MG
     Route: 048
     Dates: start: 201909, end: 201911

REACTIONS (11)
  - Unevaluable event [Not Recovered/Not Resolved]
  - Renal impairment [Unknown]
  - Respiratory tract infection [Unknown]
  - Immunodeficiency [Unknown]
  - Epistaxis [Recovered/Resolved]
  - Hypercalcaemia [Unknown]
  - Urinary tract infection [Recovered/Resolved]
  - Infection [Unknown]
  - Granulocytopenia [Unknown]
  - Anaemia [Unknown]
  - Palpitations [Recovered/Resolved]

NARRATIVE: CASE EVENT DATE: 201909
